FAERS Safety Report 15158671 (Version 3)
Quarter: 2018Q3

REPORT INFORMATION
  Report Type: Spontaneous
  Country: GB (occurrence: GB)
  Receive Date: 20180718
  Receipt Date: 20180730
  Transmission Date: 20181010
  Serious: Yes (Other)
  Sender: FDA-Public Use
  Company Number: GB-PFIZER INC-2018283109

PATIENT
  Age: 19 Year
  Sex: Female

DRUGS (1)
  1. FINASTERIDE. [Suspect]
     Active Substance: FINASTERIDE
     Indication: GENDER REASSIGNMENT THERAPY
     Dosage: UNK
     Route: 065

REACTIONS (4)
  - Intentional product use issue [Unknown]
  - Condition aggravated [Unknown]
  - Trans-sexualism [Unknown]
  - Borderline personality disorder [Unknown]
